FAERS Safety Report 24015373 (Version 6)
Quarter: 2024Q3

REPORT INFORMATION
  Report Type: Spontaneous
  Country: CH (occurrence: CH)
  Receive Date: 20240626
  Receipt Date: 20240823
  Transmission Date: 20241017
  Serious: Yes (Death, Life-Threatening, Hospitalization, Other)
  Sender: BRISTOL MYERS SQUIBB
  Company Number: CH-BRISTOL-MYERS SQUIBB COMPANY-2024-095569

PATIENT
  Age: 70 Year
  Sex: Male
  Weight: 59.7 kg

DRUGS (10)
  1. BREYANZI [Suspect]
     Active Substance: LISOCABTAGENE MARALEUCEL
     Indication: Diffuse large B-cell lymphoma
     Dosage: ENTIRE DOSE OF BREYANZI (LISOCABTAGENE MARALEUCEL) CD4+ 50 X 106 CAR + T CELLS, CD8+ 50 X 106 CAR +T
     Route: 042
     Dates: start: 20240318, end: 20240318
  2. PRIVIGEN [Concomitant]
     Active Substance: HUMAN IMMUNOGLOBULIN G
     Indication: Product used for unknown indication
  3. PREDNISOLONE [Concomitant]
     Active Substance: PREDNISOLONE
     Indication: Product used for unknown indication
  4. ETOPOSIDE [Concomitant]
     Active Substance: ETOPOSIDE
     Indication: Chemotherapy
  5. CARBOPLATIN [Concomitant]
     Active Substance: CARBOPLATIN
     Indication: Chemotherapy
  6. IFOSFAMIDE [Concomitant]
     Active Substance: IFOSFAMIDE
     Indication: Chemotherapy
  7. BACTRIM [Concomitant]
     Active Substance: SULFAMETHOXAZOLE\TRIMETHOPRIM
     Indication: Infection prophylaxis
  8. VALACYCLOVIR [Concomitant]
     Active Substance: VALACYCLOVIR HYDROCHLORIDE
     Indication: Infection prophylaxis
  9. CYCLOPHOSPHAMIDE [Concomitant]
     Active Substance: CYCLOPHOSPHAMIDE
     Indication: Diffuse large B-cell lymphoma
     Dates: start: 20240313, end: 20240315
  10. FLUDARABINE [Concomitant]
     Active Substance: FLUDARABINE PHOSPHATE
     Indication: Diffuse large B-cell lymphoma
     Dates: start: 20240313, end: 20240315

REACTIONS (1)
  - Peripheral T-cell lymphoma unspecified [Fatal]

NARRATIVE: CASE EVENT DATE: 20240610
